FAERS Safety Report 18926817 (Version 2)
Quarter: 2021Q1

REPORT INFORMATION
  Report Type: Spontaneous
  Country: SA (occurrence: SA)
  Receive Date: 20210223
  Receipt Date: 20210303
  Transmission Date: 20210420
  Serious: Yes (Life-Threatening, Hospitalization)
  Sender: FDA-Public Use
  Company Number: NVSC2021SA041674

PATIENT
  Age: 8 Year
  Sex: Female

DRUGS (1)
  1. TEGRETOL [Suspect]
     Active Substance: CARBAMAZEPINE
     Indication: PRODUCT USED FOR UNKNOWN INDICATION
     Dosage: 4 ML, BID (EVERY 12 HOURS FOR 3 WEEKS)
     Route: 065

REACTIONS (6)
  - Hepatic failure [Recovered/Resolved]
  - Pyrexia [Recovered/Resolved]
  - Cardiac failure [Recovered/Resolved]
  - Skin reaction [Recovered/Resolved]
  - Renal failure [Recovered/Resolved]
  - Stevens-Johnson syndrome [Recovered/Resolved]
